FAERS Safety Report 24416807 (Version 2)
Quarter: 2024Q4

REPORT INFORMATION
  Report Type: Spontaneous
  Country: US (occurrence: US)
  Receive Date: 20241009
  Receipt Date: 20241023
  Transmission Date: 20250115
  Serious: No
  Sender: LEO PHARM
  Company Number: US-LEO Pharma-374100

PATIENT
  Age: 66 Year
  Sex: Female

DRUGS (1)
  1. ADBRY [Suspect]
     Active Substance: TRALOKINUMAB-LDRM
     Indication: Dermatitis atopic
     Route: 058
     Dates: start: 202408

REACTIONS (8)
  - Swollen tongue [Unknown]
  - Lip erythema [Unknown]
  - Stomatitis [Unknown]
  - Ageusia [Unknown]
  - Oral discomfort [Unknown]
  - Rash [Unknown]
  - Noninfective gingivitis [Unknown]
  - Erythema [Unknown]
